FAERS Safety Report 13194673 (Version 1)
Quarter: 2017Q1

REPORT INFORMATION
  Report Type: Spontaneous
  Country: JP (occurrence: JP)
  Receive Date: 20170207
  Receipt Date: 20170207
  Transmission Date: 20170428
  Serious: Yes (Hospitalization, Other)
  Sender: FDA-Public Use
  Company Number: JP-BIOCRYST PHARMACEUTICALS, INC.-2017BCR00022

PATIENT
  Age: 38 Year
  Sex: Male

DRUGS (1)
  1. RAPIACTA [Suspect]
     Active Substance: PERAMIVIR
     Indication: INFLUENZA
     Dosage: 300 MG, UNK
     Route: 042
     Dates: start: 20170112, end: 201701

REACTIONS (5)
  - Injection site erosion [Recovering/Resolving]
  - Injection site necrosis [Recovering/Resolving]
  - Injection site ulcer [Recovering/Resolving]
  - Blood creatine phosphokinase increased [Recovering/Resolving]
  - Injection site oedema [Recovering/Resolving]

NARRATIVE: CASE EVENT DATE: 20170114
